FAERS Safety Report 19276096 (Version 1)
Quarter: 2021Q2

REPORT INFORMATION
  Report Type: Spontaneous
  Country: US (occurrence: US)
  Receive Date: 20210520
  Receipt Date: 20210520
  Transmission Date: 20210717
  Serious: No
  Sender: FDA-Public Use
  Company Number: US-CELGENEUS-USA-20210502191

PATIENT
  Sex: Male

DRUGS (1)
  1. POMALYST [Suspect]
     Active Substance: POMALIDOMIDE
     Indication: PLASMA CELL MYELOMA
     Dosage: 2 MILLIGRAM
     Route: 048
     Dates: start: 202011

REACTIONS (6)
  - Asthenia [Unknown]
  - Bone pain [Unknown]
  - Fatigue [Unknown]
  - Myalgia [Unknown]
  - Peripheral swelling [Unknown]
  - Confusional state [Unknown]

NARRATIVE: CASE EVENT DATE: 2021
